FAERS Safety Report 8374998-3 (Version None)
Quarter: 2012Q2

REPORT INFORMATION
  Report Type: 
  Country: None (occurrence: None)
  Receive Date: 20120521
  Receipt Date: 20120518
  Transmission Date: 20120825
  Serious: Yes (Hospitalization)
  Sender: FDA-Public Use
  Company Number: US-ROCHE-1070378

PATIENT
  Age: 50 Year
  Sex: Female
  Weight: 63.56 kg

DRUGS (4)
  1. ZOLEDRONOC ACID [Suspect]
     Indication: PRODUCT USED FOR UNKNOWN INDICATION
     Route: 042
     Dates: start: 20120510
  2. WARFARIN SODIUM [Concomitant]
     Indication: ANTICOAGULANT THERAPY
     Dosage: 1 MG THREE DAYS AND 5 MG 4 DAYS
     Route: 048
     Dates: start: 20080517
  3. XELODA [Suspect]
     Indication: BREAST CANCER METASTATIC
     Route: 048
     Dates: start: 20120209
  4. HERCEPTIN [Suspect]
     Indication: BREAST CANCER METASTATIC
     Dates: start: 20120209

REACTIONS (2)
  - HIP FRACTURE [None]
  - DIARRHOEA [None]
